FAERS Safety Report 14046131 (Version 1)
Quarter: 2017Q4

REPORT INFORMATION
  Report Type: Report from Study
  Country: None (occurrence: US)
  Receive Date: 20171005
  Receipt Date: 20171005
  Transmission Date: 20180321
  Serious: Yes (Hospitalization)
  Sender: FDA-Public Use
  Company Number: US-ABBVIE-16K-163-1822654-00

PATIENT
  Age: 35 Year
  Sex: Female

DRUGS (5)
  1. XANAX [Concomitant]
     Active Substance: ALPRAZOLAM
     Indication: ANXIETY
  2. HUMIRA [Suspect]
     Active Substance: ADALIMUMAB
     Indication: RHEUMATOID ARTHRITIS
  3. HUMIRA [Suspect]
     Active Substance: ADALIMUMAB
     Indication: PSORIASIS
     Route: 058
     Dates: start: 201303, end: 201409
  4. HUMIRA [Suspect]
     Active Substance: ADALIMUMAB
     Indication: PSORIATIC ARTHROPATHY
     Route: 058
     Dates: start: 201610, end: 201701
  5. KLONOPIN [Concomitant]
     Active Substance: CLONAZEPAM
     Indication: ANXIETY

REACTIONS (12)
  - Pleural effusion [Recovered/Resolved]
  - Psoriasis [Recovered/Resolved with Sequelae]
  - Intestinal perforation [Recovered/Resolved]
  - Pericardial effusion [Recovered/Resolved]
  - Abdominal wound dehiscence [Recovering/Resolving]
  - Premature delivery [Recovered/Resolved]
  - Live birth [Unknown]
  - Pre-eclampsia [Recovered/Resolved]
  - Staphylococcal sepsis [Recovering/Resolving]
  - Exposure during pregnancy [Unknown]
  - Abdominal pain [Recovering/Resolving]
  - Procedural complication [Unknown]

NARRATIVE: CASE EVENT DATE: 20151020
